FAERS Safety Report 8790878 (Version 1)
Quarter: 2012Q4

REPORT INFORMATION
  Report Type: Spontaneous
  Country: US (occurrence: None)
  Receive Date: 20120913
  Receipt Date: 20120913
  Transmission Date: 20130627
  Serious: Yes (Hospitalization)
  Sender: FDA-Public Use
  Company Number: None

PATIENT
  Age: 65 Year
  Sex: Male
  Weight: 85.4 kg

DRUGS (2)
  1. DRONEDARONE [Suspect]
     Indication: ATRIAL FIBRILLATION
     Route: 048
     Dates: start: 20120222, end: 20120417
  2. METHOCARBAMOL [Suspect]
     Route: 048
     Dates: start: 20120224, end: 20120417

REACTIONS (5)
  - Bradycardia [None]
  - Dyspnoea exertional [None]
  - Dizziness [None]
  - Orthostatic hypotension [None]
  - Diastolic dysfunction [None]
